FAERS Safety Report 20145539 (Version 1)
Quarter: 2021Q4

REPORT INFORMATION
  Report Type: Report from Study
  Country: BR (occurrence: BR)
  Receive Date: 20211203
  Receipt Date: 20211203
  Transmission Date: 20220303
  Serious: Yes (Hospitalization, Other)
  Sender: FDA-Public Use
  Company Number: BR-NOVARTISPH-NVSC2021BR271725

PATIENT
  Age: 66 Year
  Sex: Female

DRUGS (2)
  1. RIBOCICLIB [Suspect]
     Active Substance: RIBOCICLIB
     Indication: Invasive breast carcinoma
     Dosage: 600 MG, QD FOR 21 DAYS EVERY 28 DAYS
     Route: 065
  2. LETROZOLE [Suspect]
     Active Substance: LETROZOLE
     Indication: Invasive breast carcinoma
     Dosage: 2.5 MG, QD  1 TABLETS/DAY
     Route: 065

REACTIONS (9)
  - Renal failure [Unknown]
  - Back pain [Unknown]
  - Dyspnoea [Unknown]
  - Thrombocytopenia [Unknown]
  - Generalised oedema [Unknown]
  - Anaemia [Unknown]
  - Lymphadenopathy [Unknown]
  - Blood creatinine increased [Unknown]
  - Blood urea increased [Unknown]

NARRATIVE: CASE EVENT DATE: 20200601
